FAERS Safety Report 8989793 (Version 2)
Quarter: 2013Q1

REPORT INFORMATION
  Report Type: Spontaneous
  Country: US (occurrence: US)
  Receive Date: 20121228
  Receipt Date: 20130227
  Transmission Date: 20140127
  Serious: Yes (Hospitalization, Other)
  Sender: FDA-Public Use
  Company Number: US-ASTRAZENECA-2012SE94870

PATIENT
  Age: 70 Year
  Sex: Female
  Weight: 62.6 kg

DRUGS (11)
  1. NEXIUM [Suspect]
     Indication: GASTROOESOPHAGEAL REFLUX DISEASE
     Route: 048
  2. NEXIUM [Suspect]
     Indication: GASTROOESOPHAGEAL REFLUX DISEASE
     Route: 048
  3. OMEPRAZOLE [Suspect]
     Indication: GASTROOESOPHAGEAL REFLUX DISEASE
     Dosage: DAILY, WHEN NO SYMPTOMS OF GERD
     Route: 048
  4. OMEPRAZOLE [Suspect]
     Indication: GASTROOESOPHAGEAL REFLUX DISEASE
     Dosage: THREE TIMES DAILY, WHEN SYMPTOMS OF GERD
     Route: 048
  5. SUCRATE [Concomitant]
     Indication: ULCER
     Route: 048
  6. SUCRATE [Concomitant]
     Indication: ULCER
     Dosage: AS REQUIRED
     Route: 048
  7. MECLIZINE [Concomitant]
     Indication: VERTIGO
     Route: 048
  8. ADVIL [Concomitant]
     Indication: PAIN
     Dosage: PRN
     Route: 048
  9. ASPIRIN [Concomitant]
     Indication: CARDIAC MURMUR
     Route: 048
  10. QVAR [Concomitant]
     Indication: ASTHMA
     Route: 055
  11. XANAX [Concomitant]
     Indication: PANIC ATTACK
     Dosage: PRN

REACTIONS (35)
  - Myocardial infarction [Unknown]
  - Angina pectoris [Unknown]
  - Pneumonia [Unknown]
  - Nasal septum deviation [Unknown]
  - Uterine prolapse [Unknown]
  - Chest discomfort [Unknown]
  - Chest discomfort [Unknown]
  - Chest pain [Unknown]
  - Nasopharyngitis [Unknown]
  - Bronchitis [Unknown]
  - Osteoporosis [Unknown]
  - Sleep apnoea syndrome [Unknown]
  - Gastric ulcer [Unknown]
  - Hypercholesterolaemia [Unknown]
  - Hypertension [Unknown]
  - Fibromyalgia [Unknown]
  - Neurofibromatosis [Unknown]
  - Ovarian cyst [Unknown]
  - Gastrooesophageal reflux disease [Unknown]
  - Upper respiratory tract infection [Unknown]
  - Glaucoma [Unknown]
  - Seasonal allergy [Unknown]
  - Upper-airway cough syndrome [Unknown]
  - Orthopnoea [Unknown]
  - Palpitations [Unknown]
  - Incontinence [Unknown]
  - Anxiety disorder [Unknown]
  - Scoliosis [Unknown]
  - Panic attack [Unknown]
  - Meniere^s disease [Unknown]
  - Migraine [Unknown]
  - Malaise [Unknown]
  - Abdominal pain [Unknown]
  - Depressed mood [Unknown]
  - Drug ineffective [Unknown]
